FAERS Safety Report 8618607-4 (Version None)
Quarter: 2012Q3

REPORT INFORMATION
  Report Type: 
  Country: None (occurrence: None)
  Receive Date: 20120824
  Receipt Date: 20120822
  Transmission Date: 20120928
  Serious: No
  Sender: FDA-Public Use
  Company Number: US-PFIZER INC-2012206470

PATIENT
  Age: 65 Year
  Sex: Male
  Weight: 68.027 kg

DRUGS (5)
  1. CHANTIX [Suspect]
     Indication: SMOKING CESSATION THERAPY
     Dosage: 0.5 MG, 1X/DAY
     Route: 048
     Dates: start: 20120501, end: 20120701
  2. HYDROXYZINE [Concomitant]
     Indication: SKIN DISORDER
     Dosage: 25 MG CAPSULE, 1X/DAY
  3. ATRIPLA [Concomitant]
     Indication: HIV INFECTION
     Dosage: UNK, 1X/DAY
  4. LEVOTHYROXINE [Concomitant]
     Indication: HYPOTHYROIDISM
     Dosage: 100 UG, 1X/DAY
  5. HYDROXYZINE [Concomitant]
     Dosage: 25 MG TABLET, 1X/DAY

REACTIONS (5)
  - MALAISE [None]
  - FATIGUE [None]
  - ABDOMINAL DISCOMFORT [None]
  - ULCER [None]
  - SOMNOLENCE [None]
